FAERS Safety Report 7577396-5 (Version None)
Quarter: 2011Q2

REPORT INFORMATION
  Report Type: 
  Country: None (occurrence: None)
  Receive Date: 20110628
  Receipt Date: 20110522
  Transmission Date: 20111010
  Serious: No
  Sender: FDA-Public Use
  Company Number: US-BAYER-2011-044680

PATIENT
  Age: 64 Year
  Sex: Male
  Weight: 125 kg

DRUGS (1)
  1. ALEVE (CAPLET) [Suspect]
     Indication: GOUT
     Dosage: COUNT SIZE NOT SPECIFIED
     Route: 048

REACTIONS (1)
  - PAIN [None]
